FAERS Safety Report 8124081-7 (Version None)
Quarter: 2012Q1

REPORT INFORMATION
  Report Type: 
  Country: None (occurrence: None)
  Receive Date: 20120209
  Receipt Date: 20120203
  Transmission Date: 20120608
  Serious: No
  Sender: FDA-Public Use
  Company Number: US-PFIZER INC-2012030894

PATIENT
  Sex: Female

DRUGS (2)
  1. CELEBREX [Suspect]
     Dosage: 200 MG, DAILY
  2. CELEBREX [Suspect]
     Dosage: 200 MG (2X100MG), 2X/DAY
     Dates: start: 20111208

REACTIONS (2)
  - DRUG INTOLERANCE [None]
  - PRURITUS GENERALISED [None]
